FAERS Safety Report 17947586 (Version 1)
Quarter: 2020Q2

REPORT INFORMATION
  Report Type: Spontaneous
  Country: LB (occurrence: LB)
  Receive Date: 20200626
  Receipt Date: 20200626
  Transmission Date: 20200714
  Serious: Yes (Hospitalization)
  Sender: FDA-Public Use
  Company Number: LB-STRIDES ARCOLAB LIMITED-2020SP007275

PATIENT
  Age: 65 Year
  Sex: Male

DRUGS (2)
  1. LIDOCAINE. [Suspect]
     Active Substance: LIDOCAINE
     Indication: LOCAL ANAESTHESIA
     Dosage: 20ML OF 2 PERCENT LIDOCAINE GEL WAS INTRAURETHRALLY INJECTED
     Route: 066
  2. LIDOCAINE. [Suspect]
     Active Substance: LIDOCAINE
     Indication: CYSTOSCOPY

REACTIONS (5)
  - Cardiotoxicity [Recovered/Resolved]
  - Palpitations [Recovered/Resolved]
  - Dyspnoea [Recovered/Resolved]
  - Local anaesthetic systemic toxicity [Recovered/Resolved]
  - Supraventricular tachycardia [Recovered/Resolved]
